FAERS Safety Report 6610937-0 (Version None)
Quarter: 2010Q1

REPORT INFORMATION
  Report Type: 
  Country: None (occurrence: None)
  Receive Date: 20100222
  Receipt Date: 20100210
  Transmission Date: 20100710
  Serious: Yes (Hospitalization, Other)
  Sender: FDA-Public Use
  Company Number: 001679

PATIENT
  Sex: Male
  Weight: 101 kg

DRUGS (9)
  1. NEUPRO [Suspect]
     Indication: PARKINSON'S DISEASE
     Dosage: 2 MG QD  TRANSDERMAL, 4 MG QD TRANSDERMAL, 6 MG QD TRANSERMAL, 8 MG QD TRANSDERMAL
     Route: 062
     Dates: start: 20060615, end: 20060601
  2. NEUPRO [Suspect]
     Indication: PARKINSON'S DISEASE
     Dosage: 2 MG QD  TRANSDERMAL, 4 MG QD TRANSDERMAL, 6 MG QD TRANSERMAL, 8 MG QD TRANSDERMAL
     Route: 062
     Dates: start: 20060607, end: 20060614
  3. NEUPRO [Suspect]
     Indication: PARKINSON'S DISEASE
     Dosage: 2 MG QD  TRANSDERMAL, 4 MG QD TRANSDERMAL, 6 MG QD TRANSERMAL, 8 MG QD TRANSDERMAL
     Route: 062
     Dates: start: 20060601, end: 20060629
  4. NEUPRO [Suspect]
     Indication: PARKINSON'S DISEASE
     Dosage: 2 MG QD  TRANSDERMAL, 4 MG QD TRANSDERMAL, 6 MG QD TRANSERMAL, 8 MG QD TRANSDERMAL
     Route: 062
     Dates: start: 20060630, end: 20061210
  5. DOMPERIDON [Concomitant]
  6. LORZAR PLUS [Concomitant]
  7. REQUIP [Concomitant]
  8. AZILECT [Concomitant]
  9. L-DOPA [Concomitant]

REACTIONS (4)
  - ERECTILE DYSFUNCTION [None]
  - HAEMATURIA [None]
  - POST PROCEDURAL COMPLICATION [None]
  - PROSTATE CANCER [None]
